FAERS Safety Report 5759973-7 (Version None)
Quarter: 2008Q2

REPORT INFORMATION
  Report Type: 
  Country: None (occurrence: None)
  Receive Date: 20080605
  Receipt Date: 20080527
  Transmission Date: 20081010
  Serious: Yes (Other)
  Sender: FDA-Public Use
  Company Number: US-AMGEN-US282493

PATIENT
  Age: 17 Year
  Sex: Female

DRUGS (3)
  1. ARANESP [Suspect]
     Indication: DIALYSIS
     Route: 058
     Dates: start: 20080101
  2. ENALAPRIL MALEATE [Concomitant]
  3. FOSRENOL [Concomitant]

REACTIONS (1)
  - APLASIA PURE RED CELL [None]
